FAERS Safety Report 9299828 (Version 1)
Quarter: 2013Q1

REPORT INFORMATION
  Report Type: Spontaneous
  Country: US (occurrence: None)
  Receive Date: 20121227
  Receipt Date: 20121227
  Transmission Date: 20140127
  Serious: Yes (Other)
  Sender: FDA-Public Use
  Company Number: PHEH2012US019124

PATIENT
  Age: 21 Year
  Sex: Female

DRUGS (9)
  1. AFINITOR [Suspect]
     Indication: TUBEROUS SCLEROSIS
     Route: 048
     Dates: start: 20120520
  2. AFINITOR [Suspect]
     Indication: ANGIOMYOLIPOMA
     Route: 048
     Dates: start: 20120520
  3. LAMICTAL (LAMOTRIGINE) [Concomitant]
  4. VALPROIC ACID (VALPROIC ACID) [Concomitant]
  5. DIAZEPAM (DIAZEPAM) [Concomitant]
  6. VITAMINS NOS (VITAMINS NOS) [Concomitant]
  7. MIRALAX [Concomitant]
  8. CALCIUM MAGNESIUM ZINC (CALCIUM, MAGNESIUM, ZINC) [Concomitant]
  9. PROGESTERONE (PROGESTERONE) [Concomitant]

REACTIONS (3)
  - Convulsion [None]
  - Amenorrhoea [None]
  - Drug level decreased [None]
